FAERS Safety Report 19099917 (Version 1)
Quarter: 2021Q2

REPORT INFORMATION
  Report Type: Spontaneous
  Country: US (occurrence: US)
  Receive Date: 20210407
  Receipt Date: 20210407
  Transmission Date: 20210717
  Serious: No
  Sender: FDA-Public Use
  Company Number: US-PTC THERAPEUTICS, INC.-US-2020PTC000332

PATIENT
  Sex: Male
  Weight: 76.64 kg

DRUGS (2)
  1. EMFLAZA [Suspect]
     Active Substance: DEFLAZACORT
     Indication: BECKER^S MUSCULAR DYSTROPHY
  2. EMFLAZA [Suspect]
     Active Substance: DEFLAZACORT
     Indication: DUCHENNE MUSCULAR DYSTROPHY
     Dosage: 18 MG, QD (THREE TABLETS)
     Route: 048

REACTIONS (5)
  - Headache [Unknown]
  - Nervousness [Unknown]
  - Hot flush [Unknown]
  - Productive cough [Unknown]
  - Malaise [Unknown]
